FAERS Safety Report 10207107 (Version 1)
Quarter: 2014Q2

REPORT INFORMATION
  Report Type: Spontaneous
  Country: US (occurrence: None)
  Receive Date: 20140529
  Receipt Date: 20140529
  Transmission Date: 20141212
  Serious: No
  Sender: FDA-Public Use
  Company Number: None

PATIENT
  Age: 83 Year
  Sex: 0

DRUGS (1)
  1. ENBREL [Suspect]

REACTIONS (6)
  - Cognitive disorder [None]
  - Tremor [None]
  - Fatigue [None]
  - Visual impairment [None]
  - Impaired work ability [None]
  - Reading disorder [None]
